FAERS Safety Report 22145779 (Version 1)
Quarter: 2023Q1

REPORT INFORMATION
  Report Type: Spontaneous
  Country: US (occurrence: US)
  Receive Date: 20230328
  Receipt Date: 20230328
  Transmission Date: 20230418
  Serious: Yes (Other)
  Sender: FDA-Public Use
  Company Number: US-002147023-NVSC2023US066077

PATIENT
  Sex: Male

DRUGS (1)
  1. COSENTYX [Suspect]
     Active Substance: SECUKINUMAB
     Indication: Product used for unknown indication
     Dosage: UNK
     Route: 062
     Dates: start: 20230320, end: 20230320

REACTIONS (3)
  - Cardiac failure congestive [Unknown]
  - Incorrect route of product administration [Unknown]
  - Drug ineffective [Unknown]
